FAERS Safety Report 9549395 (Version 1)
Quarter: 2013Q3

REPORT INFORMATION
  Report Type: Spontaneous
  Country: CA (occurrence: CA)
  Receive Date: 20130924
  Receipt Date: 20130924
  Transmission Date: 20140515
  Serious: Yes (Life-Threatening, Hospitalization, Other)
  Sender: FDA-Public Use
  Company Number: CA-009507513-1309CAN010395

PATIENT
  Age: 55 Year
  Sex: Female

DRUGS (11)
  1. FOSAMAX [Suspect]
     Indication: PRODUCT USED FOR UNKNOWN INDICATION
     Dosage: 70 MG, QW
     Route: 065
  2. FRAGMIN [Suspect]
     Dosage: 1 DF, BID
     Route: 058
  3. FRAGMIN [Suspect]
     Indication: PRODUCT USED FOR UNKNOWN INDICATION
     Dosage: 1 DF, QD
     Route: 058
  4. ACETAMINOPHEN [Concomitant]
  5. ALENDRONATE SODIUM [Concomitant]
  6. AMLODIPINE [Concomitant]
  7. ATENOLOL [Concomitant]
  8. ATORVASTATIN [Concomitant]
  9. CEFTRIAXONE SODIUM [Concomitant]
  10. CYCLOSPORINE [Concomitant]
  11. GABAPENTIN [Concomitant]

REACTIONS (1)
  - Pulmonary embolism [Recovered/Resolved]
